FAERS Safety Report 22997410 (Version 7)
Quarter: 2023Q4

REPORT INFORMATION
  Report Type: Spontaneous
  Country: JP (occurrence: JP)
  Receive Date: 20230928
  Receipt Date: 20231221
  Transmission Date: 20240110
  Serious: Yes (Death, Hospitalization, Other)
  Sender: FDA-Public Use
  Company Number: JP-BRISTOL-MYERS SQUIBB COMPANY-2023-133240

PATIENT
  Age: 69 Year
  Sex: Male

DRUGS (4)
  1. BREYANZI [Suspect]
     Active Substance: LISOCABTAGENE MARALEUCEL
     Indication: Diffuse large B-cell lymphoma
     Dosage: DOSE-100 X 10^6 CAR + T CELLS
     Route: 041
     Dates: start: 20221216, end: 20221216
  2. CYCLOPHOSPHAMIDE [Concomitant]
     Active Substance: CYCLOPHOSPHAMIDE
     Indication: Lymphodepletion
     Dates: start: 20221212, end: 20221214
  3. FLUDARABINE [Concomitant]
     Active Substance: FLUDARABINE PHOSPHATE
     Indication: Lymphodepletion
     Dates: start: 20221212, end: 20221214
  4. FLUDARABINE [Concomitant]
     Active Substance: FLUDARABINE PHOSPHATE
     Dosage: REDUCED BY 20% DUE TO RENAL DISORDER (ESTIMATED GLOMERULAR FILTRATION RATE [EGFR] 54).

REACTIONS (2)
  - Peripheral T-cell lymphoma unspecified [Fatal]
  - COVID-19 [Not Recovered/Not Resolved]

NARRATIVE: CASE EVENT DATE: 20221227
